FAERS Safety Report 17252265 (Version 3)
Quarter: 2020Q1

REPORT INFORMATION
  Report Type: Spontaneous
  Country: US (occurrence: US)
  Receive Date: 20200109
  Receipt Date: 20200224
  Transmission Date: 20200409
  Serious: No
  Sender: FDA-Public Use
  Company Number: US-PFIZER INC-2020007735

PATIENT
  Age: 66 Year
  Sex: Female
  Weight: 93.89 kg

DRUGS (7)
  1. PACLITAXEL. [Suspect]
     Active Substance: PACLITAXEL
     Indication: OVARIAN CANCER
     Dosage: 361 MG, EVERY 3 WEEKS ((175 MG/M2, RECEIVED MULTIPLE VIALS FOR A TOTAL OF 361MG - EVERY 21 DAYS )
     Route: 042
     Dates: start: 20191216, end: 20200106
  2. CINVANTI [Concomitant]
     Active Substance: APREPITANT
     Indication: VOMITING
     Dosage: 130 MG, UNK
     Dates: start: 20191216
  3. DEXAMETHASONE. [Concomitant]
     Active Substance: DEXAMETHASONE
     Indication: VOMITING
     Dosage: 12 MG, UNK
     Dates: start: 20191216
  4. ZOFRAN [Concomitant]
     Active Substance: ONDANSETRON HYDROCHLORIDE
     Indication: VOMITING
     Dosage: 16 MG, UNK
     Dates: start: 20191216
  5. PEPCID [Concomitant]
     Active Substance: FAMOTIDINE
     Indication: VOMITING
     Dosage: 20 MG, UNK
     Dates: start: 20191216
  6. CARBOPLATIN. [Concomitant]
     Active Substance: CARBOPLATIN
     Indication: OVARIAN CANCER
     Dosage: 882 MG, UNK
     Dates: start: 20191216
  7. BENADRYL [Concomitant]
     Active Substance: DIPHENHYDRAMINE HYDROCHLORIDE
     Indication: VOMITING
     Dosage: 50 MG, UNK
     Dates: start: 20191216

REACTIONS (7)
  - Incontinence [Recovered/Resolved]
  - Pain [Recovered/Resolved]
  - Dyspnoea [Recovered/Resolved]
  - Chest discomfort [Recovered/Resolved]
  - Dizziness [Recovered/Resolved]
  - Presyncope [Recovered/Resolved]
  - Flushing [Recovered/Resolved]

NARRATIVE: CASE EVENT DATE: 20200106
